FAERS Safety Report 8578065-5 (Version None)
Quarter: 2012Q3

REPORT INFORMATION
  Report Type: 
  Country: None (occurrence: None)
  Receive Date: 20120808
  Receipt Date: 20120802
  Transmission Date: 20120928
  Serious: Yes (Other)
  Sender: FDA-Public Use
  Company Number: PHEH2012US015207

PATIENT
  Sex: Female

DRUGS (1)
  1. RECLAST [Suspect]
     Route: 042

REACTIONS (9)
  - PAIN [None]
  - HEADACHE [None]
  - BACK PAIN [None]
  - ANXIETY [None]
  - ARTHRALGIA [None]
  - FEELING ABNORMAL [None]
  - PYREXIA [None]
  - PAIN IN EXTREMITY [None]
  - NAUSEA [None]
